FAERS Safety Report 17729637 (Version 22)
Quarter: 2021Q3

REPORT INFORMATION
  Report Type: Spontaneous
  Country: US (occurrence: US)
  Receive Date: 20200430
  Receipt Date: 20210908
  Transmission Date: 20211014
  Serious: Yes (Other)
  Sender: FDA-Public Use
  Company Number: US-DSJP-DSU-2020-112766

PATIENT
  Sex: Male
  Weight: 106.58 kg

DRUGS (10)
  1. DOXYCYCLINE. [Concomitant]
     Active Substance: DOXYCYCLINE
     Indication: PRODUCT USED FOR UNKNOWN INDICATION
     Dosage: 100 MG, BID
     Route: 065
  2. TURALIO [Suspect]
     Active Substance: PEXIDARTINIB HYDROCHLORIDE
     Dosage: 400 MG, BID
     Route: 048
  3. TURALIO [Suspect]
     Active Substance: PEXIDARTINIB HYDROCHLORIDE
     Dosage: 400 MG, BID
     Route: 048
     Dates: start: 20210419
  4. TOPROL XL [Concomitant]
     Active Substance: METOPROLOL SUCCINATE
     Indication: PRODUCT USED FOR UNKNOWN INDICATION
     Dosage: 25 MG, QD
     Route: 065
  5. TURALIO [Suspect]
     Active Substance: PEXIDARTINIB HYDROCHLORIDE
     Indication: GIANT CELL TUMOUR OF TENDON SHEATH
     Dosage: 400 MG, BID
     Route: 048
     Dates: start: 20200418
  6. TURALIO [Suspect]
     Active Substance: PEXIDARTINIB HYDROCHLORIDE
     Dosage: 400 MG, BID
     Route: 048
     Dates: start: 20200418
  7. TURALIO [Suspect]
     Active Substance: PEXIDARTINIB HYDROCHLORIDE
     Dosage: 200 MG,2 CAPSULE BID
     Route: 048
  8. ASPIRIN                            /00002701/ [Concomitant]
     Active Substance: ASPIRIN
     Indication: PRODUCT USED FOR UNKNOWN INDICATION
     Dosage: 81 MG, QD
     Route: 065
  9. VITAMIN 15 [Concomitant]
     Indication: PRODUCT USED FOR UNKNOWN INDICATION
     Dosage: TWICE A WK
     Route: 065
  10. TURALIO [Suspect]
     Active Substance: PEXIDARTINIB HYDROCHLORIDE
     Dosage: 400 MG, BID
     Route: 048
     Dates: start: 20200418

REACTIONS (30)
  - Somnolence [Not Recovered/Not Resolved]
  - Wound drainage [Not Recovered/Not Resolved]
  - Haematocrit decreased [Recovered/Resolved]
  - Pain in extremity [Recovered/Resolved]
  - Skin lesion [Recovered/Resolved]
  - Peripheral coldness [Recovered/Resolved]
  - Flatulence [Not Recovered/Not Resolved]
  - Decreased appetite [Recovered/Resolved]
  - Illness [Recovered/Resolved]
  - Tumour excision [Unknown]
  - Macular degeneration [Not Recovered/Not Resolved]
  - Mass [Recovered/Resolved]
  - Back pain [Recovered/Resolved]
  - Eructation [Not Recovered/Not Resolved]
  - Psoriasis [Recovered/Resolved]
  - Abdominal discomfort [Recovered/Resolved]
  - Device related infection [Unknown]
  - Fatigue [Not Recovered/Not Resolved]
  - Haemoglobin decreased [Recovered/Resolved]
  - Haemorrhage urinary tract [Recovered/Resolved]
  - Arthralgia [Recovered/Resolved]
  - Dizziness [Not Recovered/Not Resolved]
  - Nausea [Recovered/Resolved]
  - Wound complication [Not Recovered/Not Resolved]
  - Glassy eyes [Recovered/Resolved]
  - Skin exfoliation [Recovered/Resolved]
  - Vision blurred [Recovered/Resolved]
  - Disorientation [Not Recovered/Not Resolved]
  - Anaemia [Recovered/Resolved]
  - Prostatic disorder [Recovered/Resolved]

NARRATIVE: CASE EVENT DATE: 2020
